FAERS Safety Report 16671864 (Version 2)
Quarter: 2019Q3

REPORT INFORMATION
  Report Type: Spontaneous
  Country: BG (occurrence: BG)
  Receive Date: 20190806
  Receipt Date: 20190926
  Transmission Date: 20191004
  Serious: Yes (Hospitalization, Other)
  Sender: FDA-Public Use
  Company Number: BG-SA-2019SA192617

PATIENT
  Sex: Male

DRUGS (5)
  1. XGEVA [Concomitant]
     Active Substance: DENOSUMAB
     Dosage: 120 MG/1.7ML MG -120 MG
  2. DEXAMETHASONE SOPHARMA [Concomitant]
     Dosage: 4 MG/ML -1 ML MG - 8 MG
     Dates: start: 20190903
  3. DEXAMETHASONE SOPHARMA [Concomitant]
     Dosage: 4 MG/ML -1 ML MG - 8 MG
     Dates: start: 20190904
  4. JEVTANA [Suspect]
     Active Substance: CABAZITAXEL
     Dosage: AT INTERVAL OF 21 DAYS
     Route: 042
  5. JEVTANA [Suspect]
     Active Substance: CABAZITAXEL
     Dosage: AT INTERVAL OF 21 DAYS
     Route: 065

REACTIONS (5)
  - Pyrexia [Unknown]
  - Chills [Recovered/Resolved]
  - Hypertensive crisis [Unknown]
  - Hypersensitivity [Unknown]
  - Neuropathy peripheral [Unknown]
